FAERS Safety Report 8172775 (Version 8)
Quarter: 2013Q3

REPORT INFORMATION
  Report Type: Spontaneous
  Country: US (occurrence: US)
  Receive Date: 20111007
  Receipt Date: 20130709
  Transmission Date: 20140515
  Serious: Yes (Hospitalization)
  Sender: FDA-Public Use
  Company Number: US-GLAXOSMITHKLINE-A0947827A

PATIENT
  Age: 60 Year
  Sex: Female

DRUGS (3)
  1. FLOLAN [Suspect]
     Indication: PULMONARY ARTERIAL HYPERTENSION
     Dosage: 36NGKM CONTINUOUS
     Route: 042
     Dates: start: 19991001
  2. COUMADIN [Concomitant]
  3. REVATIO [Concomitant]

REACTIONS (9)
  - Breast cancer [Recovered/Resolved]
  - Infection [Recovered/Resolved]
  - Eye operation [Recovered/Resolved]
  - Adverse event [Recovered/Resolved]
  - Injection site dryness [Recovered/Resolved]
  - Injection site pruritus [Recovered/Resolved]
  - Skin irritation [Recovered/Resolved]
  - Breast lump removal [Recovered/Resolved]
  - Radiotherapy [Unknown]
